FAERS Safety Report 25604166 (Version 1)
Quarter: 2025Q3

REPORT INFORMATION
  Report Type: Spontaneous
  Country: US (occurrence: US)
  Receive Date: 20250725
  Receipt Date: 20250725
  Transmission Date: 20251021
  Serious: Yes (Death, Life-Threatening, Hospitalization)
  Sender: DR REDDYS
  Company Number: None

PATIENT
  Age: 71 Year
  Sex: Female

DRUGS (6)
  1. TACROLIMUS [Suspect]
     Active Substance: TACROLIMUS
     Indication: Immunosuppressant drug therapy
  2. RITONAVIR [Suspect]
     Active Substance: RITONAVIR
     Indication: Suspected COVID-19
  3. PREDNISONE [Concomitant]
     Active Substance: PREDNISONE
     Indication: Immunosuppressant drug therapy
  4. MYCOPHENOLIC ACID [Concomitant]
     Active Substance: MYCOPHENOLIC ACID
     Indication: Immunosuppressant drug therapy
  5. REMDESIVIR [Concomitant]
     Active Substance: REMDESIVIR
     Indication: SARS-CoV-2 sepsis
  6. NIRMATRELVIR [Concomitant]
     Active Substance: NIRMATRELVIR
     Indication: Suspected COVID-19

REACTIONS (11)
  - Leukocytosis [Fatal]
  - Metabolic acidosis [Fatal]
  - Hypophosphataemia [Fatal]
  - Hypomagnesaemia [Fatal]
  - Hypoxic-ischaemic encephalopathy [Fatal]
  - Drug interaction [Fatal]
  - Toxicity to various agents [Fatal]
  - Cardiac arrest [Fatal]
  - Diarrhoea [Fatal]
  - Electrolyte imbalance [Fatal]
  - Coma [Fatal]
